FAERS Safety Report 5692235-5 (Version None)
Quarter: 2008Q2

REPORT INFORMATION
  Report Type: 
  Country: None (occurrence: None)
  Receive Date: 20080402
  Receipt Date: 20080324
  Transmission Date: 20081010
  Serious: Yes (Other)
  Sender: FDA-Public Use
  Company Number: ES-ALLERGAN-0803792US

PATIENT
  Age: 42 Year
  Sex: Female

DRUGS (1)
  1. DYSPORT [Suspect]
     Indication: MUSCLE RIGIDITY
     Dosage: 1000 UNITS, SINGLE
     Route: 030

REACTIONS (1)
  - STRABISMUS [None]
